FAERS Safety Report 7009994-1 (Version None)
Quarter: 2010Q3

REPORT INFORMATION
  Report Type: 
  Country: None (occurrence: None)
  Receive Date: 20100921
  Receipt Date: 20100902
  Transmission Date: 20110219
  Serious: Yes (Other)
  Sender: FDA-Public Use
  Company Number: UK-ACCORD-003090

PATIENT
  Age: 71 Year
  Sex: Female

DRUGS (6)
  1. MITOMYCIN [Suspect]
     Indication: THERAPEUTIC EMBOLISATION
     Dosage: 10.00-MG- / INTRAHEPATIC
     Route: 025
  2. PREDNISONE [Suspect]
  3. DAUNORUBICIN HCL [Concomitant]
  4. CISPLATIN [Concomitant]
  5. ETHIODOL(ETHIODOL) [Concomitant]
  6. DEXAMETHASONE [Concomitant]

REACTIONS (9)
  - BLOOD ALKALINE PHOSPHATASE INCREASED [None]
  - CATHETER SITE HAEMORRHAGE [None]
  - HAEMOGLOBIN DECREASED [None]
  - HAEMOLYSIS [None]
  - HYPERGLYCAEMIA [None]
  - HYPERTENSION [None]
  - JAUNDICE [None]
  - OFF LABEL USE [None]
  - THROMBOTIC THROMBOCYTOPENIC PURPURA [None]
